FAERS Safety Report 15005961 (Version 1)
Quarter: 2018Q2

REPORT INFORMATION
  Report Type: Spontaneous
  Country: LS (occurrence: LS)
  Receive Date: 20180613
  Receipt Date: 20180613
  Transmission Date: 20180720
  Serious: Yes (Hospitalization, Other)
  Sender: FDA-Public Use
  Company Number: LS-JACOBUS PHARMACEUTICAL COMPANY, INC.-2049337

PATIENT
  Age: 89 Year
  Sex: Female
  Weight: 65.14 kg

DRUGS (3)
  1. PASER [Suspect]
     Active Substance: AMINOSALICYLIC ACID
     Indication: TUBERCULOSIS
     Route: 048
     Dates: start: 20170510, end: 20180517
  2. CYCLOSERINE. [Suspect]
     Active Substance: CYCLOSERINE
  3. DELAMANID [Suspect]
     Active Substance: DELAMANID

REACTIONS (9)
  - Blood creatinine increased [Unknown]
  - Azotaemia [Unknown]
  - Diabetes mellitus [Unknown]
  - Dehydration [Unknown]
  - Hyponatraemia [Unknown]
  - Toxicity to various agents [Unknown]
  - Electrolyte imbalance [Unknown]
  - Hypokalaemia [Unknown]
  - Acute kidney injury [Unknown]
